FAERS Safety Report 6691758-X (Version None)
Quarter: 2010Q2

REPORT INFORMATION
  Report Type: 
  Country: None (occurrence: None)
  Receive Date: 20100422
  Receipt Date: 20090921
  Transmission Date: 20101027
  Serious: No
  Sender: FDA-Public Use
  Company Number: US-ASTRAZENECA-2009SE14255

PATIENT
  Age: 45 Year
  Sex: Male
  Weight: 99.8 kg

DRUGS (1)
  1. TOPROL-XL [Suspect]
     Indication: HYPERTENSION
     Route: 048
     Dates: start: 20020101, end: 20090922

REACTIONS (1)
  - BLOOD CHOLESTEROL ABNORMAL [None]
